FAERS Safety Report 5628748-1 (Version None)
Quarter: 2008Q1

REPORT INFORMATION
  Report Type: 
  Country: None (occurrence: None)
  Receive Date: 20080215
  Receipt Date: 20080205
  Transmission Date: 20080703
  Serious: Yes (Hospitalization, Other)
  Sender: FDA-Public Use
  Company Number: US-PFIZER INC-2008012630

PATIENT
  Age: 41 Year
  Sex: Female

DRUGS (7)
  1. CHANTIX [Suspect]
     Indication: SMOKING CESSATION THERAPY
     Route: 048
  2. BUPROPION HCL [Concomitant]
  3. CLONAZEPAM [Concomitant]
  4. OXCARBAZEPINE [Concomitant]
  5. QUETIAPINE FUMARATE [Concomitant]
  6. MONTELUKAST SODIUM [Concomitant]
  7. PANTOPRAZOLE [Concomitant]

REACTIONS (10)
  - AGITATION [None]
  - CRYING [None]
  - FEELINGS OF WORTHLESSNESS [None]
  - FLIGHT OF IDEAS [None]
  - HYPOMANIA [None]
  - INSOMNIA [None]
  - IRRITABILITY [None]
  - SELF INJURIOUS BEHAVIOUR [None]
  - SUICIDAL IDEATION [None]
  - TENSION [None]
